FAERS Safety Report 6715097-3 (Version None)
Quarter: 2010Q2

REPORT INFORMATION
  Report Type: 
  Country: None (occurrence: None)
  Receive Date: 20100507
  Receipt Date: 20100428
  Transmission Date: 20101027
  Serious: Yes (Hospitalization)
  Sender: FDA-Public Use
  Company Number: US-JNJFOC-20100500430

PATIENT
  Sex: Male
  Weight: 77.11 kg

DRUGS (9)
  1. FENTANYL CITRATE [Suspect]
     Indication: PAIN
     Route: 062
  2. FENTANYL CITRATE [Suspect]
     Route: 062
  3. FENTANYL CITRATE [Suspect]
     Route: 062
  4. FENTANYL CITRATE [Suspect]
     Route: 062
  5. KLONOPIN [Concomitant]
     Indication: NERVOUSNESS
     Route: 048
  6. WELLBUTRIN XL [Concomitant]
     Indication: DEPRESSION
     Route: 048
  7. PERCOCET [Concomitant]
     Indication: BREAKTHROUGH PAIN
     Dosage: ALTERNATES WITH
     Route: 048
  8. OXYCODONE HCL [Concomitant]
     Indication: BREAKTHROUGH PAIN
     Dosage: 4 TIMES A DAY AS NECESSARY
     Route: 048
  9. ZOFRAN [Concomitant]
     Indication: NAUSEA
     Route: 048

REACTIONS (4)
  - BLOOD CHOLESTEROL INCREASED [None]
  - DRUG INEFFECTIVE [None]
  - FIBROMYALGIA [None]
  - OSTEONECROSIS [None]
